FAERS Safety Report 5494492-7 (Version None)
Quarter: 2007Q4

REPORT INFORMATION
  Report Type: 
  Country: None (occurrence: None)
  Receive Date: 20071022
  Receipt Date: 20071013
  Transmission Date: 20080405
  Serious: Yes (Hospitalization)
  Sender: FDA-Public Use
  Company Number: 2007BI013497

PATIENT
  Age: 46 Year
  Sex: Male

DRUGS (1)
  1. NATALIZUMAB [Suspect]
     Indication: MULTIPLE SCLEROSIS
     Dosage: 300 MG; QM; IV
     Route: 042
     Dates: start: 20070427

REACTIONS (7)
  - ASPIRATION [None]
  - ASTHENIA [None]
  - DYSPHAGIA [None]
  - GASTROINTESTINAL INFECTION [None]
  - INCOHERENT [None]
  - PNEUMONIA [None]
  - URINARY TRACT INFECTION [None]
